FAERS Safety Report 6970188-7 (Version None)
Quarter: 2010Q3

REPORT INFORMATION
  Report Type: 
  Country: None (occurrence: None)
  Receive Date: 20100908
  Receipt Date: 20100831
  Transmission Date: 20110219
  Serious: Yes (Death, Hospitalization, Other)
  Sender: FDA-Public Use
  Company Number: CA-CELGENEUS-028-21880-10071274

PATIENT
  Sex: Female
  Weight: 74.8 kg

DRUGS (12)
  1. REVLIMID [Suspect]
     Indication: MULTIPLE MYELOMA
     Route: 048
     Dates: start: 20100513
  2. REVLIMID [Suspect]
     Route: 048
     Dates: start: 20100614, end: 20100628
  3. REVLIMID [Suspect]
     Route: 048
     Dates: start: 20100714, end: 20100802
  4. PREDNISONE [Concomitant]
     Indication: MULTIPLE MYELOMA
     Route: 048
     Dates: start: 20100513
  5. PREDNISONE [Concomitant]
     Route: 048
     Dates: start: 20100714, end: 20100802
  6. OXYCODONE [Concomitant]
     Indication: PAIN MANAGEMENT
     Route: 048
  7. PANTOPRAZOLE [Concomitant]
     Indication: PRODUCT USED FOR UNKNOWN INDICATION
     Route: 048
  8. LACTULOSE [Concomitant]
     Indication: CONSTIPATION
     Dosage: 1-2 TBSP
     Route: 065
  9. LEVOTHYROXINE [Concomitant]
     Route: 048
  10. ATORVASTATIN [Concomitant]
     Route: 048
  11. NITROGLYCERIN [Concomitant]
     Indication: ANGINA PECTORIS
     Route: 060
  12. ZOPICLONE [Concomitant]
     Dosage: 7.5-15MG
     Route: 065

REACTIONS (5)
  - ANAEMIA [None]
  - EPISTAXIS [None]
  - LEUKAEMIA PLASMACYTIC [None]
  - MOUTH ULCERATION [None]
  - RECTAL HAEMORRHAGE [None]
